FAERS Safety Report 5130401-8 (Version None)
Quarter: 2006Q4

REPORT INFORMATION
  Report Type: 
  Country: None (occurrence: None)
  Receive Date: 20061018
  Receipt Date: 20061018
  Transmission Date: 20070319
  Serious: Yes (Hospitalization, Other)
  Sender: FDA-Public Use
  Company Number: None

PATIENT
  Age: 86 Year
  Sex: Male
  Weight: 81.6475 kg

DRUGS (3)
  1. ZOCOR [Suspect]
     Dosage: 20 MG AT NIGHT ORAL
     Route: 048
     Dates: start: 19980101, end: 20061001
  2. NORVASC [Concomitant]
  3. IMDUR [Concomitant]

REACTIONS (6)
  - BLOOD CREATININE INCREASED [None]
  - CYSTOSCOPY ABNORMAL [None]
  - FLANK PAIN [None]
  - HYPOAESTHESIA [None]
  - KIDNEY ENLARGEMENT [None]
  - PARAESTHESIA [None]
